FAERS Safety Report 8180054 (Version 2)
Quarter: 2012Q4

REPORT INFORMATION
  Report Type: Report from Study
  Country: US (occurrence: US)
  Receive Date: 20111013
  Receipt Date: 20121126
  Transmission Date: 20130627
  Serious: Yes (Hospitalization, Other)
  Sender: FDA-Public Use
  Company Number: US-PFIZER INC-2011240724

PATIENT
  Age: 43 Year
  Sex: Female
  Weight: 68 kg

DRUGS (4)
  1. EFFEXOR XR [Suspect]
     Indication: DEPRESSION
     Dosage: 150 mg, 2x/day
     Dates: end: 2011
  2. KLONOPIN [Suspect]
     Indication: CONVULSIONS
     Dosage: 2 mg, daily
     Dates: start: 2004
  3. KLONOPIN [Suspect]
     Indication: SEIZURES
  4. ATENOLOL/CHLORTHALIDONE [Concomitant]
     Indication: BLOOD PRESSURE HIGH
     Dosage: 100 mg, daily

REACTIONS (11)
  - Convulsion [Recovering/Resolving]
  - Activities of daily living impaired [Recovered/Resolved]
  - Feeling abnormal [Recovered/Resolved]
  - Decreased appetite [Recovered/Resolved]
  - Dehydration [Recovered/Resolved]
  - Musculoskeletal disorder [Recovered/Resolved]
  - Movement disorder [Recovered/Resolved]
  - Blood cholesterol increased [Unknown]
  - Dysstasia [Unknown]
  - Withdrawal syndrome [Unknown]
  - Balance disorder [Unknown]
